FAERS Safety Report 8575738-5 (Version None)
Quarter: 2012Q3

REPORT INFORMATION
  Report Type: 
  Country: None (occurrence: None)
  Receive Date: 20120807
  Receipt Date: 20120806
  Transmission Date: 20120928
  Serious: Yes (Other)
  Sender: FDA-Public Use
  Company Number: PHHY2010CA57415

PATIENT
  Sex: Female

DRUGS (1)
  1. SANDOSTATIN LAR [Suspect]
     Indication: NEUROENDOCRINE TUMOUR
     Dosage: 30 MG ONCE A MONTH
     Route: 030
     Dates: start: 20100629, end: 20120328

REACTIONS (5)
  - ANXIETY [None]
  - DIARRHOEA [None]
  - NEOPLASM PROGRESSION [None]
  - BLOOD PRESSURE INCREASED [None]
  - NEUROENDOCRINE TUMOUR [None]
